FAERS Safety Report 8150541-9 (Version None)
Quarter: 2012Q1

REPORT INFORMATION
  Report Type: 
  Country: None (occurrence: None)
  Receive Date: 20120220
  Receipt Date: 20120210
  Transmission Date: 20120608
  Serious: Yes (Other)
  Sender: FDA-Public Use
  Company Number: FR-ASTELLAS-2011EU005370

PATIENT

DRUGS (4)
  1. TACROLIMUS [Suspect]
     Dosage: 1.5 MG, UNKNOWN/D
     Route: 065
  2. MYCOPHENOLATE MOFETIL [Concomitant]
     Dosage: 750 MG, UNKNOWN/D
     Route: 065
  3. PROGRAF [Suspect]
     Dosage: 1.25 MG, UNKNOWN/D
     Route: 065
     Dates: start: 20040719
  4. MYCOPHENOLATE MOFETIL [Concomitant]
     Dosage: 750 MG, UNKNOWN/D
     Route: 065

REACTIONS (4)
  - SQUAMOUS CELL CARCINOMA [None]
  - SKIN PAPILLOMA [None]
  - HYPERKERATOSIS [None]
  - DIABETES MELLITUS [None]
